FAERS Safety Report 18423029 (Version 1)
Quarter: 2020Q4

REPORT INFORMATION
  Report Type: Spontaneous
  Country: US (occurrence: US)
  Receive Date: 20201023
  Receipt Date: 20201023
  Transmission Date: 20210114
  Serious: No
  Sender: FDA-Public Use
  Company Number: US-ABBVIE-20K-163-3502932-00

PATIENT
  Age: 50 Year
  Sex: Female

DRUGS (1)
  1. ORILISSA [Suspect]
     Active Substance: ELAGOLIX SODIUM
     Indication: UTERINE LEIOMYOMA
     Route: 048
     Dates: start: 20200723

REACTIONS (2)
  - Menorrhagia [Unknown]
  - Off label use [Unknown]

NARRATIVE: CASE EVENT DATE: 20200724
